FAERS Safety Report 9280669 (Version 1)
Quarter: 2013Q2

REPORT INFORMATION
  Report Type: Spontaneous
  Country: TR (occurrence: None)
  Receive Date: 20130503
  Receipt Date: 20130503
  Transmission Date: 20140414
  Serious: Yes (Other)
  Sender: FDA-Public Use
  Company Number: 2013/093

PATIENT
  Age: 44 Year
  Sex: Female

DRUGS (1)
  1. VENLAFAXINE [Suspect]
     Indication: MIGRAINE
     Dosage: 75 MG/DAY

REACTIONS (1)
  - Restless legs syndrome [None]
